FAERS Safety Report 11585001 (Version 2)
Quarter: 2015Q4

REPORT INFORMATION
  Report Type: Spontaneous
  Country: JP (occurrence: JP)
  Receive Date: 20151001
  Receipt Date: 20151014
  Transmission Date: 20160304
  Serious: Yes (Other)
  Sender: FDA-Public Use
  Company Number: JP-PFIZER INC-2015326271

PATIENT
  Age: 30 Year
  Sex: Male

DRUGS (1)
  1. TROBICIN [Suspect]
     Active Substance: SPECTINOMYCIN HYDROCHLORIDE
     Indication: GONORRHOEA
     Dosage: UNK
     Route: 030

REACTIONS (3)
  - Neurogenic shock [Unknown]
  - Feeling abnormal [Recovered/Resolved]
  - Injection site pain [Unknown]
